FAERS Safety Report 10486872 (Version 2)
Quarter: 2014Q4

REPORT INFORMATION
  Report Type: Report from Study
  Country: KR (occurrence: KR)
  Receive Date: 20141001
  Receipt Date: 20141020
  Transmission Date: 20150528
  Serious: Yes (Death, Life-Threatening)
  Sender: FDA-Public Use
  Company Number: KR-SA-2014SA134868

PATIENT
  Age: 67 Year
  Sex: Female
  Weight: 53.5 kg

DRUGS (2)
  1. DOCETAXEL. [Suspect]
     Active Substance: DOCETAXEL
     Indication: GASTROINTESTINAL NEOPLASM
     Dosage: DAILY DOSE: 38 MG
     Route: 042
     Dates: start: 20130401, end: 20130402
  2. TS-1 [Suspect]
     Active Substance: GIMERACIL\OTERACIL\TEGAFUR
     Indication: GASTROINTESTINAL NEOPLASM
     Route: 042
     Dates: start: 20130402, end: 20130403

REACTIONS (1)
  - Embolism [Fatal]

NARRATIVE: CASE EVENT DATE: 20130403
